FAERS Safety Report 6024277-4 (Version None)
Quarter: 2008Q4

REPORT INFORMATION
  Report Type: 
  Country: None (occurrence: None)
  Receive Date: 20081224
  Receipt Date: 20081216
  Transmission Date: 20090506
  Serious: Yes (Congenital Anomaly, Other)
  Sender: FDA-Public Use
  Company Number: 2008120028

PATIENT
  Sex: Male

DRUGS (1)
  1. D-PENICILLAMINE [Suspect]
     Dosage: 2 GRAMS, DAILY TRANSPLACENTAL
     Route: 064

REACTIONS (4)
  - GOITRE CONGENITAL [None]
  - HYPOTHYROIDISM [None]
  - MATERNAL DRUGS AFFECTING FOETUS [None]
  - PREMATURE BABY [None]
